FAERS Safety Report 21482888 (Version 2)
Quarter: 2022Q4

REPORT INFORMATION
  Report Type: Report from Study
  Country: US (occurrence: US)
  Receive Date: 20221020
  Receipt Date: 20221216
  Transmission Date: 20230112
  Serious: Yes (Other)
  Sender: FDA-Public Use
  Company Number: US-SA-SAC20221014001181

PATIENT
  Age: 61 Year
  Sex: Female

DRUGS (1)
  1. ALEMTUZUMAB [Suspect]
     Active Substance: ALEMTUZUMAB
     Indication: Multiple sclerosis
     Dosage: 12 MG, QD (1 VIAL [12 MG/DAY]) X 5 CONSECUTIVE DAYS)
     Route: 041
     Dates: start: 20200618, end: 20200626

REACTIONS (5)
  - Haemophagocytic lymphohistiocytosis [Unknown]
  - Hyperhidrosis [Unknown]
  - Hepatic pain [Unknown]
  - Blood iron increased [Unknown]
  - Inappropriate schedule of product administration [Unknown]
